FAERS Safety Report 10633281 (Version 4)
Quarter: 2015Q1

REPORT INFORMATION
  Report Type: Spontaneous
  Country: GB (occurrence: None)
  Receive Date: 20141203
  Receipt Date: 20150311
  Transmission Date: 20150720
  Serious: Yes (Hospitalization, Other)
  Sender: FDA-Public Use
  Company Number: FK201405634

PATIENT
  Age: 39 Year
  Sex: Female

DRUGS (7)
  1. NAPROXEN (NAPROXEN) [Concomitant]
     Active Substance: NAPROXEN
  2. CODEINE [Concomitant]
     Active Substance: CODEINE
  3. OMEPRAZOLE (OMEPRAZOLE) [Concomitant]
     Active Substance: OMEPRAZOLE
  4. METHOTREXATE (MANUFACTURER UNKNOWN) (METHOTREXATE) (METHOTREXATE) [Suspect]
     Active Substance: METHOTREXATE
     Indication: PSORIATIC ARTHROPATHY
     Dosage: 20 MG, 1 WK
     Route: 058
     Dates: start: 200903
  5. HUMIRA [Suspect]
     Active Substance: ADALIMUMAB
     Indication: PSORIATIC ARTHROPATHY
     Dosage: 40 MG, 1 IN 2 WK
     Route: 058
     Dates: start: 201004, end: 20100601
  6. PARACETAMOL (PARACETAMOL) [Concomitant]
     Active Substance: ACETAMINOPHEN
  7. FOLIC ACID (FOLIC ACID) [Concomitant]
     Active Substance: FOLIC ACID

REACTIONS (10)
  - Alopecia [None]
  - Peripheral swelling [None]
  - Erythema [None]
  - Skin exfoliation [None]
  - Alanine aminotransferase increased [None]
  - Onychomadesis [None]
  - Pustular psoriasis [None]
  - Blister [None]
  - Rash generalised [None]
  - Skin fissures [None]

NARRATIVE: CASE EVENT DATE: 20100602
